FAERS Safety Report 18771301 (Version 2)
Quarter: 2021Q1

REPORT INFORMATION
  Report Type: Spontaneous
  Country: JP (occurrence: JP)
  Receive Date: 20210122
  Receipt Date: 20210212
  Transmission Date: 20210419
  Serious: Yes (Death, Life-Threatening)
  Sender: FDA-Public Use
  Company Number: JP-GEHPL-2021JSU000225AA

PATIENT

DRUGS (15)
  1. ROSUVASTATIN. [Concomitant]
     Active Substance: ROSUVASTATIN
  2. VISIPAQUE [Suspect]
     Active Substance: IODIXANOL
     Indication: ANGIOCARDIOGRAM
  3. SIGMART [Concomitant]
     Active Substance: NICORANDIL
  4. VISIPAQUE [Suspect]
     Active Substance: IODIXANOL
     Indication: CATHETERISATION CARDIAC
     Dosage: 173 ML, SINGLE
     Route: 022
     Dates: start: 20210110, end: 20210110
  5. LANSOPRAZOLE. [Concomitant]
     Active Substance: LANSOPRAZOLE
  6. BAYASPIRIN [Concomitant]
     Active Substance: ASPIRIN
  7. EDIROL [Concomitant]
     Active Substance: ELDECALCITOL
  8. VISIPAQUE [Suspect]
     Active Substance: IODIXANOL
     Indication: BLOOD PRESSURE DECREASED
  9. MYOCOR [Concomitant]
     Active Substance: NITROGLYCERIN
  10. TRAZENTA [Concomitant]
     Active Substance: LINAGLIPTIN
  11. SHAKUYAKUKANZOTO [Concomitant]
     Active Substance: HERBALS
  12. CARVEDILOL. [Concomitant]
     Active Substance: CARVEDILOL
  13. THYRADIN?S [Concomitant]
     Active Substance: LEVOTHYROXINE
  14. ZETIA [Concomitant]
     Active Substance: EZETIMIBE
  15. MYOCOR [Concomitant]
     Active Substance: NITROGLYCERIN

REACTIONS (4)
  - Shock haemorrhagic [Fatal]
  - Bradycardia [Not Recovered/Not Resolved]
  - Off label use [Recovered/Resolved]
  - Blood pressure decreased [Not Recovered/Not Resolved]

NARRATIVE: CASE EVENT DATE: 20210110
